FAERS Safety Report 21967095 (Version 1)
Quarter: 2023Q1

REPORT INFORMATION
  Report Type: Spontaneous
  Country: US (occurrence: None)
  Receive Date: 20230206
  Receipt Date: 20230206
  Transmission Date: 20230417
  Serious: No
  Sender: FDA-Public Use
  Company Number: None

PATIENT
  Sex: 0

DRUGS (1)
  1. LASIX [Suspect]
     Active Substance: FUROSEMIDE

REACTIONS (1)
  - Drug hypersensitivity [None]
